FAERS Safety Report 5968015-X (Version None)
Quarter: 2008Q4

REPORT INFORMATION
  Report Type: 
  Country: None (occurrence: None)
  Receive Date: 20081121
  Receipt Date: 20081121
  Transmission Date: 20090506
  Serious: Yes (Other)
  Sender: FDA-Public Use
  Company Number: None

PATIENT
  Age: 28 Year
  Sex: Female
  Weight: 79.8331 kg

DRUGS (2)
  1. NUBAIN [Suspect]
     Indication: NEPHROLITHIASIS
     Dosage: 10MG Q3H IV
     Route: 042
     Dates: start: 20081118, end: 20081118
  2. NUBAIN [Suspect]
     Indication: RENAL PAIN
     Dosage: 10MG Q3H IV
     Route: 042
     Dates: start: 20081118, end: 20081118

REACTIONS (7)
  - AGITATION [None]
  - CONVULSION [None]
  - FAECAL INCONTINENCE [None]
  - FEELING HOT [None]
  - HYPERHIDROSIS [None]
  - TACHYCARDIA [None]
  - VOMITING [None]
